FAERS Safety Report 20937292 (Version 1)
Quarter: 2022Q2

REPORT INFORMATION
  Report Type: Spontaneous
  Country: US (occurrence: US)
  Receive Date: 20220609
  Receipt Date: 20220609
  Transmission Date: 20220721
  Serious: No
  Sender: FDA-Public Use
  Company Number: US-TEVA-2022-US-2037178

PATIENT
  Age: 72 Year
  Sex: Female

DRUGS (2)
  1. TRAMADOL [Suspect]
     Active Substance: TRAMADOL
     Indication: Back pain
     Dosage: 3 DOSAGE FORMS DAILY; TWO TABLETS IN THE MORNING AND ONE AT NIGHT
  2. TRAMADOL [Suspect]
     Active Substance: TRAMADOL
     Dosage: ONE TABLET IN THE MORNING AND 1/3 TABLET AT NIGHT

REACTIONS (4)
  - Anxiety [Unknown]
  - Agitation [Unknown]
  - Insomnia [Unknown]
  - Wrong technique in product usage process [Unknown]
